FAERS Safety Report 20500235 (Version 7)
Quarter: 2022Q4

REPORT INFORMATION
  Report Type: Report from Study
  Country: US (occurrence: US)
  Receive Date: 20220222
  Receipt Date: 20221018
  Transmission Date: 20230112
  Serious: Yes (Hospitalization)
  Sender: FDA-Public Use
  Company Number: US-NOVARTISPH-NVSC2022US040395

PATIENT
  Sex: Male

DRUGS (1)
  1. ENTRESTO [Suspect]
     Active Substance: SACUBITRIL\VALSARTAN
     Indication: Product used for unknown indication
     Dosage: 0.5 DOSAGE FORM, BID (24/26 MG 1/2 TAB)
     Route: 048
     Dates: start: 202110

REACTIONS (12)
  - Sepsis [Unknown]
  - COVID-19 [Unknown]
  - Thrombosis [Unknown]
  - Cellulitis [Unknown]
  - Cardiac failure congestive [Unknown]
  - Pneumonia [Unknown]
  - Arthralgia [Not Recovered/Not Resolved]
  - Procedural pain [Unknown]
  - Joint injury [Not Recovered/Not Resolved]
  - Back pain [Unknown]
  - Prescribed underdose [Unknown]
  - Wrong technique in product usage process [Unknown]
